FAERS Safety Report 18520709 (Version 2)
Quarter: 2020Q4

REPORT INFORMATION
  Report Type: Spontaneous
  Country: CA (occurrence: CA)
  Receive Date: 20201119
  Receipt Date: 20201210
  Transmission Date: 20210114
  Serious: No
  Sender: FDA-Public Use
  Company Number: CA-SA-2020SA324486

PATIENT

DRUGS (2)
  1. DUPILUMAB [Suspect]
     Active Substance: DUPILUMAB
     Indication: TUBULOINTERSTITIAL NEPHRITIS
  2. VANCOMYCIN [Suspect]
     Active Substance: VANCOMYCIN

REACTIONS (2)
  - Eosinophil count increased [Unknown]
  - Product use in unapproved indication [Unknown]
